FAERS Safety Report 8720605 (Version 2)
Quarter: 2015Q2

REPORT INFORMATION
  Report Type: Report from Study
  Country: US (occurrence: US)
  Receive Date: 20120813
  Receipt Date: 20150624
  Transmission Date: 20150821
  Serious: Yes (Hospitalization)
  Sender: FDA-Public Use
  Company Number: US-ROCHE-1099293

PATIENT
  Age: 45 Year
  Sex: Male

DRUGS (14)
  1. ASPIRIN. [Concomitant]
     Active Substance: ASPIRIN
     Route: 048
  2. HEPARIN [Concomitant]
     Active Substance: HEPARIN SODIUM
     Dosage: 1200 UNITS
     Route: 042
  3. ATROPIN [Concomitant]
     Route: 042
  4. ACTIVASE [Suspect]
     Active Substance: ALTEPLASE
     Indication: ACUTE MYOCARDIAL INFARCTION
     Route: 040
  5. GLUCOTROL [Concomitant]
     Active Substance: GLIPIZIDE
  6. NITROGLYCERIN. [Concomitant]
     Active Substance: NITROGLYCERIN
  7. LOPRESSOR [Concomitant]
     Active Substance: METOPROLOL TARTRATE
     Dosage: IN MORNING
     Route: 065
  8. TYLENOL [Concomitant]
     Active Substance: ACETAMINOPHEN
     Indication: PYREXIA
     Dosage: PRN
     Route: 048
  9. HEPARIN [Concomitant]
     Active Substance: HEPARIN SODIUM
     Dosage: 1500 UNITS
     Route: 065
  10. LIDOCAINE. [Concomitant]
     Active Substance: LIDOCAINE
     Route: 042
  11. ACTIVASE [Suspect]
     Active Substance: ALTEPLASE
     Route: 040
  12. HYDROCHLOROTHIAZIDE. [Concomitant]
     Active Substance: HYDROCHLOROTHIAZIDE
     Route: 065
  13. PROCARDIA (UNITED STATES) [Concomitant]
     Route: 060
  14. LIDOCAINE. [Concomitant]
     Active Substance: LIDOCAINE
     Route: 042

REACTIONS (4)
  - Pleuritic pain [Unknown]
  - Cardiac ventricular thrombosis [Unknown]
  - Hyperglycaemia [Unknown]
  - Cardiomegaly [Unknown]
